FAERS Safety Report 6247803-9 (Version None)
Quarter: 2009Q2

REPORT INFORMATION
  Report Type: 
  Country: None (occurrence: None)
  Receive Date: 20090626
  Receipt Date: 20090615
  Transmission Date: 20091009
  Serious: Yes (Hospitalization)
  Sender: FDA-Public Use
  Company Number: PHHY2009CH23654

PATIENT
  Age: 35 Year
  Sex: Female

DRUGS (5)
  1. VOLTAREN [Suspect]
     Indication: SUICIDAL IDEATION
     Dosage: 2 TABLET IN MORNING
     Route: 048
     Dates: start: 20090119
  2. LEXOTANIL [Suspect]
     Indication: SUICIDAL IDEATION
     Dosage: 2 TABLETS
     Route: 048
     Dates: start: 20090119
  3. BUSCOPAN [Suspect]
     Indication: SUICIDAL IDEATION
     Dosage: 2 TABLET
     Route: 048
     Dates: start: 20090119
  4. XANAX [Suspect]
     Indication: SUICIDAL IDEATION
     Dosage: 3 TABLETS
     Route: 048
     Dates: start: 20090118
  5. AULIN [Suspect]
     Indication: SUICIDAL IDEATION
     Dosage: 2 TABLETS
     Route: 048
     Dates: start: 20090118

REACTIONS (1)
  - SUICIDE ATTEMPT [None]
